FAERS Safety Report 5514793-3 (Version None)
Quarter: 2007Q4

REPORT INFORMATION
  Report Type: 
  Country: None (occurrence: None)
  Receive Date: 20071109
  Receipt Date: 20071105
  Transmission Date: 20080405
  Serious: Yes (Hospitalization)
  Sender: FDA-Public Use
  Company Number: JPI-P-002398

PATIENT
  Sex: Male
  Weight: 158.759 kg

DRUGS (1)
  1. XYREM [Suspect]
     Indication: DRUG USE FOR UNKNOWN INDICATION
     Dosage: 18 GM (6 GM, 3 IN 1 D), ORAL
     Route: 048

REACTIONS (1)
  - MENTAL DISORDER [None]
